FAERS Safety Report 9963193 (Version 1)
Quarter: 2014Q1

REPORT INFORMATION
  Report Type: Report from Study
  Country: US (occurrence: US)
  Receive Date: 20140305
  Receipt Date: 20140305
  Transmission Date: 20141002
  Serious: No
  Sender: FDA-Public Use
  Company Number: US-ABBVIE-13P-163-1112708-00

PATIENT
  Age: 66 Year
  Sex: Female

DRUGS (20)
  1. HUMIRA [Suspect]
     Indication: CROHN^S DISEASE
     Dates: start: 20130528
  2. CITALOPRAM [Concomitant]
     Indication: ANTIDEPRESSANT THERAPY
  3. BENTYL [Concomitant]
     Indication: CROHN^S DISEASE
  4. LEVBID [Concomitant]
     Indication: CROHN^S DISEASE
  5. DICYCLOMINE [Concomitant]
     Indication: CROHN^S DISEASE
     Dosage: BEFORE MEALS
  6. BUDESONIDE ERC NEVEL [Concomitant]
     Indication: CROHN^S DISEASE
  7. NASOCORT AQ-2 [Concomitant]
     Indication: ASTHMA
     Dosage: BILATERAL NASAL DAILY
     Route: 045
  8. LEVOTHYROXINE [Concomitant]
     Indication: HYPERTHYROIDISM
  9. HYDROXYZINE HCL [Concomitant]
     Indication: CYSTITIS
  10. ELMIRON [Concomitant]
     Indication: CYSTITIS
  11. LOSARTAN [Concomitant]
     Indication: HYPERTENSION
  12. ALLEGRA [Concomitant]
     Indication: ASTHMA
  13. ALLEGRA [Concomitant]
     Indication: CHRONIC OBSTRUCTIVE PULMONARY DISEASE
  14. ALLEGRA [Concomitant]
     Indication: HYPERSENSITIVITY
  15. SINGULAIR [Concomitant]
     Indication: ASTHMA
  16. SINGULAIR [Concomitant]
     Indication: CHRONIC OBSTRUCTIVE PULMONARY DISEASE
  17. ADVAIR DISKUS [Concomitant]
     Indication: ASTHMA
  18. PRILOSEC [Concomitant]
     Indication: DYSPEPSIA
  19. PREMARIN [Concomitant]
     Indication: HOT FLUSH
  20. PROVERA [Concomitant]
     Indication: HOT FLUSH

REACTIONS (2)
  - Osteoarthritis [Unknown]
  - Arthralgia [Not Recovered/Not Resolved]
